FAERS Safety Report 6936061-5 (Version None)
Quarter: 2010Q3

REPORT INFORMATION
  Report Type: 
  Country: None (occurrence: None)
  Receive Date: 20100819
  Receipt Date: 20100819
  Transmission Date: 20110219
  Serious: Yes (Other)
  Sender: FDA-Public Use
  Company Number: None

PATIENT
  Sex: Female
  Weight: 54.4316 kg

DRUGS (2)
  1. GEODON [Suspect]
     Indication: DEPRESSION
     Dosage: 40MG ONCE A DAY PO
     Route: 048
     Dates: start: 20100707, end: 20100814
  2. KLONOPIN [Concomitant]

REACTIONS (9)
  - CHROMATOPSIA [None]
  - DEAFNESS [None]
  - HALLUCINATION [None]
  - HEARING IMPAIRED [None]
  - MEMORY IMPAIRMENT [None]
  - TARDIVE DYSKINESIA [None]
  - THINKING ABNORMAL [None]
  - VERTIGO [None]
  - VISUAL IMPAIRMENT [None]
